FAERS Safety Report 24896969 (Version 2)
Quarter: 2025Q1

REPORT INFORMATION
  Report Type: Spontaneous
  Country: US (occurrence: US)
  Receive Date: 20250128
  Receipt Date: 20250131
  Transmission Date: 20250409
  Serious: No
  Sender: ROCHE
  Company Number: US-ROCHE-10000187864

PATIENT
  Age: 33 Year
  Sex: Female

DRUGS (5)
  1. RITUXAN [Suspect]
     Active Substance: RITUXIMAB
     Indication: Rheumatoid arthritis
     Route: 065
  2. HYDROXYCHLOROQUINE [Concomitant]
     Active Substance: HYDROXYCHLOROQUINE
  3. FOLIC ACID [Concomitant]
     Active Substance: FOLIC ACID
  4. IRON [Concomitant]
     Active Substance: IRON
  5. METHOTREXATE [Concomitant]
     Active Substance: METHOTREXATE

REACTIONS (6)
  - Chills [Unknown]
  - Skin discolouration [Unknown]
  - Panic attack [Unknown]
  - Headache [Recovered/Resolved]
  - Piloerection [Unknown]
  - Peripheral coldness [Unknown]

NARRATIVE: CASE EVENT DATE: 20250120
